FAERS Safety Report 18968145 (Version 20)
Quarter: 2024Q3

REPORT INFORMATION
  Report Type: Spontaneous
  Country: BR (occurrence: BR)
  Receive Date: 20210304
  Receipt Date: 20240918
  Transmission Date: 20241017
  Serious: Yes (Hospitalization, Other)
  Sender: GLAXOSMITHKLINE
  Company Number: BR-GLAXOSMITHKLINE-BR1976GSK000001

PATIENT

DRUGS (4)
  1. BENLYSTA [Suspect]
     Active Substance: BELIMUMAB
     Indication: Systemic lupus erythematosus
     Dosage: 120 MG
     Route: 042
     Dates: start: 20180912
  2. BENLYSTA [Suspect]
     Active Substance: BELIMUMAB
     Dosage: UNK, (2X400MG)
     Route: 042
  3. BENLYSTA [Suspect]
     Active Substance: BELIMUMAB
     Dosage: UNK (2X120MG)
     Route: 042
  4. COVID-19 VACCINE NOS [Suspect]
     Active Substance: COVID-19 VACCINE
     Indication: Prophylaxis
     Dosage: UNK

REACTIONS (16)
  - COVID-19 [Recovered/Resolved]
  - Systemic lupus erythematosus [Recovered/Resolved]
  - Surgery [Unknown]
  - Skin lesion [Recovered/Resolved]
  - Sinusitis [Recovered/Resolved]
  - Condition aggravated [Recovering/Resolving]
  - Infection [Unknown]
  - Pharyngitis [Unknown]
  - Arthralgia [Not Recovered/Not Resolved]
  - Joint swelling [Not Recovered/Not Resolved]
  - Nasopharyngitis [Recovered/Resolved]
  - Influenza [Recovered/Resolved]
  - Dengue fever [Recovered/Resolved]
  - Lung disorder [Unknown]
  - Product dose omission issue [Unknown]
  - Inappropriate schedule of product administration [Unknown]

NARRATIVE: CASE EVENT DATE: 20201002
